FAERS Safety Report 18659370 (Version 1)
Quarter: 2020Q4

REPORT INFORMATION
  Report Type: Spontaneous
  Country: US (occurrence: US)
  Receive Date: 20201224
  Receipt Date: 20201224
  Transmission Date: 20210114
  Serious: No
  Sender: FDA-Public Use
  Company Number: US-TEVA-2020-US-1862702

PATIENT
  Sex: Female

DRUGS (1)
  1. OXYBUTYNIN PLIVA [Suspect]
     Active Substance: OXYBUTYNIN
     Indication: BLADDER DISORDER
     Dosage: TAKING 1-1/2 OXYBUTYNIN 5MG TABLETS A DAY
     Route: 065

REACTIONS (2)
  - Extra dose administered [Unknown]
  - Therapeutic product effect incomplete [Unknown]
